FAERS Safety Report 7983793-6 (Version None)
Quarter: 2011Q4

REPORT INFORMATION
  Report Type: 
  Country: None (occurrence: None)
  Receive Date: 20111215
  Receipt Date: 20110322
  Transmission Date: 20120403
  Serious: Yes (Hospitalization)
  Sender: FDA-Public Use
  Company Number: PHFR2011GB00548

PATIENT
  Sex: Female

DRUGS (2)
  1. CLOZARIL [Suspect]
     Dosage: 750 MG/DAY
  2. CLOZARIL [Suspect]
     Indication: SCHIZOPHRENIA
     Dosage: 750 MG/DAY
     Route: 048
     Dates: start: 19980805, end: 20101227

REACTIONS (2)
  - URINARY TRACT INFECTION [None]
  - CONFUSIONAL STATE [None]
